FAERS Safety Report 23712895 (Version 3)
Quarter: 2024Q2

REPORT INFORMATION
  Report Type: Spontaneous
  Country: LU (occurrence: LU)
  Receive Date: 20240405
  Receipt Date: 20240419
  Transmission Date: 20240716
  Serious: Yes (Other)
  Sender: FDA-Public Use
  Company Number: None

PATIENT
  Age: 58 Year
  Sex: Male
  Weight: 100 kg

DRUGS (6)
  1. ZIRABEV [Suspect]
     Active Substance: BEVACIZUMAB-BVZR
     Indication: Colon cancer
     Dosage: 2ND COURSE OF CHEMOTHERAPY5 MG/KG
     Route: 042
     Dates: start: 20240215, end: 20240215
  2. LEUCOVORIN CALCIUM [Suspect]
     Active Substance: LEUCOVORIN CALCIUM
     Indication: Colon cancer
     Dosage: 2ND COURSE OF CHEMOTHERAPY350 MG/M2
     Route: 042
     Dates: start: 20240215, end: 20240215
  3. OXALIPLATIN [Suspect]
     Active Substance: OXALIPLATIN
     Indication: Colon cancer
     Dosage: 2ND COURSE OF CHEMOTHERAPY : 85 MG/M2RECEIVED ONLY 80% OF THE SCHEDULED DOSE
     Route: 042
     Dates: start: 20240215, end: 20240215
  4. PALONOSETRON [Concomitant]
     Active Substance: PALONOSETRON
     Indication: Chemotherapy side effect prophylaxis
     Dosage: 2ND COURSE OF CHEMOTHERAPY
     Route: 048
     Dates: start: 20240215, end: 20240215
  5. DEXAMETHASONE [Concomitant]
     Active Substance: DEXAMETHASONE
     Indication: Chemotherapy side effect prophylaxis
     Dosage: 2ND COURSE OF CHEMOTHERAPY
     Route: 042
     Dates: start: 20240215, end: 20240215
  6. FLUOROURACIL [Concomitant]
     Active Substance: FLUOROURACIL

REACTIONS (5)
  - Infusion related reaction [Recovered/Resolved]
  - Rash [Recovered/Resolved]
  - Dyspnoea [Recovered/Resolved]
  - Swelling face [Recovered/Resolved]
  - Erythema [Recovered/Resolved]

NARRATIVE: CASE EVENT DATE: 20240215
